FAERS Safety Report 5749646-9 (Version None)
Quarter: 2008Q2

REPORT INFORMATION
  Report Type: 
  Country: None (occurrence: None)
  Receive Date: 20080527
  Receipt Date: 20080514
  Transmission Date: 20081010
  Serious: Yes (Hospitalization, Disabling, Other)
  Sender: FDA-Public Use
  Company Number: US-MERCK-0707USA04998

PATIENT
  Age: 54 Year
  Sex: Female

DRUGS (6)
  1. FOSAMAX [Suspect]
     Indication: OSTEOPENIA
     Route: 048
     Dates: start: 20010101, end: 20050101
  2. FOSAMAX [Suspect]
     Route: 048
     Dates: start: 20000701, end: 20050101
  3. CLINDAMYCIN [Suspect]
     Route: 065
  4. LOVENOX [Suspect]
     Route: 065
  5. LEVAQUIN [Suspect]
     Route: 065
  6. COUMADIN [Suspect]
     Route: 065

REACTIONS (40)
  - ABSCESS [None]
  - ADVERSE DRUG REACTION [None]
  - ANGINA PECTORIS [None]
  - ANIMAL BITE [None]
  - APHTHOUS STOMATITIS [None]
  - CANDIDIASIS [None]
  - CELLULITIS [None]
  - CONFUSIONAL STATE [None]
  - CONVULSION [None]
  - COUGH [None]
  - DEAFNESS [None]
  - DEEP VEIN THROMBOSIS [None]
  - DRUG HYPERSENSITIVITY [None]
  - DRUG TOXICITY [None]
  - DYSPHAGIA [None]
  - FALL [None]
  - FUNGAL INFECTION [None]
  - GAIT DISTURBANCE [None]
  - GOUT [None]
  - HERPES SIMPLEX [None]
  - HYPERCOAGULATION [None]
  - HYPERGLYCAEMIA [None]
  - HYPOTHYROIDISM [None]
  - IMPAIRED HEALING [None]
  - LYMPHADENOPATHY [None]
  - LYMPHANGITIS [None]
  - MIGRAINE [None]
  - OPEN WOUND [None]
  - ORAL INFECTION [None]
  - OSTEOARTHRITIS [None]
  - OSTEOMYELITIS CHRONIC [None]
  - OSTEONECROSIS [None]
  - PHLEBITIS [None]
  - REFLUX OESOPHAGITIS [None]
  - SCIATICA [None]
  - SEROMA [None]
  - SIALOADENITIS [None]
  - TEMPOROMANDIBULAR JOINT SYNDROME [None]
  - TINNITUS [None]
  - WHEEZING [None]
